FAERS Safety Report 9849872 (Version 1)
Quarter: 2014Q1

REPORT INFORMATION
  Report Type: Spontaneous
  Country: GB (occurrence: None)
  Receive Date: 20140124
  Receipt Date: 20140124
  Transmission Date: 20141002
  Serious: Yes (Disabling, Other)
  Sender: FDA-Public Use
  Company Number: AUR-APL-2014-00304

PATIENT
  Age: 36 Year
  Sex: Female
  Weight: 60 kg

DRUGS (2)
  1. AMOXICILLIN (AMOXICILLIN) [Suspect]
     Indication: INCREASED UPPER AIRWAY SECRETION
     Dosage: 3 DOSAGE FORMS, 1 D
     Route: 048
     Dates: start: 20131226, end: 20131227
  2. OVARNETTE (EUGYNON /00022701/) [Concomitant]

REACTIONS (4)
  - Pruritus [None]
  - Burning sensation [None]
  - Oropharyngeal pain [None]
  - Feeling abnormal [None]
